FAERS Safety Report 6961639-2 (Version None)
Quarter: 2010Q3

REPORT INFORMATION
  Report Type: 
  Country: None (occurrence: None)
  Receive Date: 20100901
  Receipt Date: 20100826
  Transmission Date: 20110219
  Serious: Yes (Hospitalization)
  Sender: FDA-Public Use
  Company Number: US-ABBOTT-10P-163-0666506-00

PATIENT
  Sex: Female
  Weight: 54.934 kg

DRUGS (8)
  1. HUMIRA [Suspect]
     Indication: CROHN'S DISEASE
     Dates: start: 20090801, end: 20091101
  2. PREDNISONE [Suspect]
     Indication: PLEURISY
     Dates: start: 20100301
  3. VALPROIC ACID [Concomitant]
     Indication: CONVULSION
  4. PROMTHAZINE [Concomitant]
     Indication: NAUSEA
  5. PANTOPRAZOLE [Concomitant]
     Indication: GASTROOESOPHAGEAL REFLUX DISEASE
  6. IBUPROFEN [Concomitant]
     Indication: PAIN
  7. HYDROCODONE [Concomitant]
     Indication: PAIN
  8. VITAMINS [Concomitant]
     Indication: VITAMIN SUPPLEMENTATION

REACTIONS (12)
  - BLOOD POTASSIUM DECREASED [None]
  - FLUID RETENTION [None]
  - LUNG CYST [None]
  - NASOPHARYNGITIS [None]
  - PLEURISY [None]
  - PNEUMONIA [None]
  - PYREXIA [None]
  - RENAL FAILURE [None]
  - STAPHYLOCOCCAL INFECTION [None]
  - STOMATITIS [None]
  - URINE ANALYSIS ABNORMAL [None]
  - VOMITING [None]
